FAERS Safety Report 10158176 (Version 2)
Quarter: 2014Q2

REPORT INFORMATION
  Report Type: Spontaneous
  Country: US (occurrence: US)
  Receive Date: 20140507
  Receipt Date: 20140604
  Transmission Date: 20141212
  Serious: Yes (Death, Hospitalization, Other)
  Sender: FDA-Public Use
  Company Number: US-GILEAD-2014-0101814

PATIENT
  Age: 81 Year
  Sex: Female

DRUGS (4)
  1. LETAIRIS [Suspect]
     Indication: PRODUCT USED FOR UNKNOWN INDICATION
     Dosage: 10 MG, UNK
     Route: 065
     Dates: start: 20100511
  2. ASA [Concomitant]
     Dosage: 81 MG, UNK
  3. ADCIRCA [Concomitant]
     Dosage: 20 MG, UNK
  4. PLAVIX [Concomitant]
     Dosage: 75 MG, UNK

REACTIONS (4)
  - Nosocomial infection [Fatal]
  - Respiratory failure [Unknown]
  - Cardiac pacemaker insertion [Unknown]
  - Fluid retention [Unknown]
